FAERS Safety Report 10218424 (Version 1)
Quarter: 2014Q2

REPORT INFORMATION
  Report Type: Spontaneous
  Country: FR (occurrence: FR)
  Receive Date: 20140605
  Receipt Date: 20140605
  Transmission Date: 20141212
  Serious: Yes (Hospitalization)
  Sender: FDA-Public Use
  Company Number: FR-JNJFOC-20140600868

PATIENT
  Age: 87 Year
  Sex: Male

DRUGS (18)
  1. HUMAN CLOTTABLE PROTEIN/HUMAN THROMBIN [Suspect]
     Indication: HAEMOSTASIS
     Route: 065
     Dates: start: 20121003, end: 20121003
  2. HYPNOMIDATE [Suspect]
     Indication: ANAESTHESIA
     Route: 042
     Dates: start: 20121003, end: 20121003
  3. HEPARIN SODIUM [Suspect]
     Indication: EXTRACORPOREAL CIRCULATION
     Dosage: 16000 + 4000 (BOLUS)
     Route: 042
     Dates: start: 20121003, end: 20121003
  4. KARDEGIC [Suspect]
     Indication: CARDIOVASCULAR EVENT PROPHYLAXIS
     Route: 065
  5. TANAKAN [Suspect]
     Indication: COGNITIVE DISORDER
     Dates: end: 20121003
  6. PROPOFOL [Suspect]
     Indication: ANAESTHESIA
     Route: 042
     Dates: start: 20121003, end: 20121003
  7. NIMBEX [Suspect]
     Indication: ANAESTHESIA
     Route: 042
     Dates: start: 20121003, end: 20121003
  8. SUFENTANIL [Suspect]
     Indication: ANAESTHESIA
     Route: 042
     Dates: start: 20121003, end: 20121003
  9. VANCOMYCIN [Suspect]
     Indication: ANAESTHESIA
     Route: 042
     Dates: start: 20121003, end: 20121003
  10. EXACYL [Suspect]
     Indication: HAEMORRHAGE PROPHYLAXIS
     Route: 042
     Dates: start: 20121003, end: 20121003
  11. ATARAX [Suspect]
     Indication: ANXIETY
     Dosage: 50MG + 25MG
     Route: 048
     Dates: start: 20121002, end: 20121003
  12. KETAMINE [Suspect]
     Indication: ANAESTHESIA
     Route: 042
     Dates: start: 20121003, end: 20121003
  13. CRESTOR [Concomitant]
     Indication: DYSLIPIDAEMIA
     Route: 065
  14. AVODART [Concomitant]
     Indication: PRODUCT USED FOR UNKNOWN INDICATION
     Route: 048
     Dates: end: 20121001
  15. INEXIUM [Concomitant]
     Indication: PROPHYLAXIS AGAINST GASTROINTESTINAL ULCER
     Dosage: 20 MG + 40 MG
     Route: 065
     Dates: start: 20121003
  16. STILNOX [Concomitant]
     Indication: INSOMNIA
  17. ESCODARONE [Concomitant]
     Indication: PRODUCT USED FOR UNKNOWN INDICATION
     Route: 065
  18. LOCAL HAEMOSTATICS [Concomitant]
     Indication: HAEMOSTASIS
     Route: 065
     Dates: start: 20121003, end: 20121003

REACTIONS (1)
  - Post procedural haemorrhage [Recovered/Resolved]
